FAERS Safety Report 9521341 (Version 3)
Quarter: 2013Q4

REPORT INFORMATION
  Report Type: Spontaneous
  Country: US (occurrence: None)
  Receive Date: 20130911
  Receipt Date: 20131224
  Transmission Date: 20140711
  Serious: Yes (Other)
  Sender: FDA-Public Use
  Company Number: 1878848

PATIENT
  Age: 71 Year
  Sex: Male
  Weight: 82.7 kg

DRUGS (2)
  1. VANCOMYCIN HYDROCHLORIDE [Suspect]
     Indication: PRODUCT USED FOR UNKNOWN INDICATION
     Dosage: NOT REPORTED, NOT REPORTED
     Route: 041
     Dates: start: 20130826, end: 20130826
  2. VANCOMYCIN HYDROCHLORIDE [Suspect]
     Indication: PRODUCT USED FOR UNKNOWN INDICATION
     Dosage: NOT REPORTED, NOT REPORTED
     Route: 041
     Dates: start: 20130826, end: 20130826

REACTIONS (6)
  - Anaphylactic reaction [None]
  - Rash [None]
  - Dyspnoea [None]
  - Mental status changes [None]
  - Hypotension [None]
  - Slow response to stimuli [None]
